FAERS Safety Report 9107037 (Version 1)
Quarter: 2013Q1

REPORT INFORMATION
  Report Type: Spontaneous
  Country: US (occurrence: US)
  Receive Date: 20130221
  Receipt Date: 20130221
  Transmission Date: 20140127
  Serious: Yes (Hospitalization, Other)
  Sender: FDA-Public Use
  Company Number: US-BAXTER-2013BAX006019

PATIENT
  Sex: Male

DRUGS (2)
  1. DIANEAL PD2 [Suspect]
     Indication: PERITONEAL DIALYSIS
     Route: 033
  2. DIANEAL PD2 [Suspect]
     Indication: PERITONEAL DIALYSIS
     Dosage: SPLIT TO KEEP SWELLING DOWN IN FEET
     Route: 033

REACTIONS (4)
  - Atrial flutter [Recovering/Resolving]
  - Hernia [Unknown]
  - Aneurysm [Unknown]
  - Local swelling [Unknown]
